FAERS Safety Report 23052132 (Version 2)
Quarter: 2024Q2

REPORT INFORMATION
  Report Type: Report from Study
  Country: JP (occurrence: JP)
  Receive Date: 20231010
  Receipt Date: 20240417
  Transmission Date: 20240716
  Serious: Yes (Other)
  Sender: FDA-Public Use
  Company Number: JP-BRISTOL-MYERS SQUIBB COMPANY-2023-139283

PATIENT
  Age: 28 Year
  Sex: Female
  Weight: 45.6 kg

DRUGS (1)
  1. BREYANZI [Suspect]
     Active Substance: LISOCABTAGENE MARALEUCEL
     Indication: Diffuse large B-cell lymphoma
     Dosage: TOTAL NUMBER OF CELLS ADMINISTERED: 50X10^6 (CD4+ LYMPHOCYTES, CD8+ LYMPHOCYTES)
     Route: 042
     Dates: start: 20221128, end: 20221128

REACTIONS (6)
  - Cytokine release syndrome [Recovered/Resolved]
  - Immune effector cell-associated neurotoxicity syndrome [Recovered/Resolved]
  - Enterococcal sepsis [Unknown]
  - Toxoplasmosis [Unknown]
  - Lymphocyte count decreased [Unknown]
  - Brain oedema [Recovered/Resolved]

NARRATIVE: CASE EVENT DATE: 20221130
